FAERS Safety Report 4607199-2 (Version None)
Quarter: 2005Q1

REPORT INFORMATION
  Report Type: 
  Country: None (occurrence: None)
  Receive Date: 20050309
  Receipt Date: 20050224
  Transmission Date: 20050727
  Serious: Yes (Hospitalization)
  Sender: FDA-Public Use
  Company Number: 2005038777

PATIENT
  Age: 55 Year
  Sex: Female

DRUGS (1)
  1. GABAPENTIN [Suspect]
     Indication: PAIN
     Dosage: 600 MG (300 MG, 2 IN 1 D); UNKNOWN

REACTIONS (6)
  - ABASIA [None]
  - ASTHENIA [None]
  - DYSARTHRIA [None]
  - DYSPHEMIA [None]
  - MYOCLONUS [None]
  - NEUROTOXICITY [None]
